FAERS Safety Report 16954754 (Version 2)
Quarter: 2019Q4

REPORT INFORMATION
  Report Type: Spontaneous
  Country: US (occurrence: US)
  Receive Date: 20191024
  Receipt Date: 20191211
  Transmission Date: 20200122
  Serious: Yes (Other)
  Sender: FDA-Public Use
  Company Number: US-DRREDDYS-USA/USA/19/0115454

PATIENT
  Age: 62 Year
  Sex: Female

DRUGS (9)
  1. GEMCITABINE FOR INJECTION (1 GRAM LYOPHILIZED POWDER IN A STERILE SING [Suspect]
     Active Substance: GEMCITABINE HYDROCHLORIDE
     Indication: METASTASES TO BONE
  2. GEMCITABINE FOR INJECTION (1 GRAM LYOPHILIZED POWDER IN A STERILE SING [Suspect]
     Active Substance: GEMCITABINE HYDROCHLORIDE
     Indication: TRIPLE NEGATIVE BREAST CANCER
     Dosage: WEEKLY
     Dates: start: 201307, end: 201309
  3. OXALIPLATIN. [Concomitant]
     Active Substance: OXALIPLATIN
     Indication: TRIPLE NEGATIVE BREAST CANCER
     Dosage: WEEKS
     Dates: start: 201403, end: 2014
  4. GRANULOCYTE MACROPHAGE COLONY STIM FACTOR [Concomitant]
     Active Substance: GRANULOCYTE-MACROPHAGE COLONY-STIMULATING FACTOR
     Indication: PROPHYLAXIS
     Dosage: UP TO 5 DAYS EACH WEEK
     Dates: start: 201207
  5. ZOLEDRONIC ACID. [Suspect]
     Active Substance: ZOLEDRONIC ACID
     Indication: PROPHYLAXIS
     Dates: start: 201207, end: 201501
  6. OXALIPLATIN. [Concomitant]
     Active Substance: OXALIPLATIN
     Indication: METASTASES TO BONE
     Dates: start: 201401, end: 201403
  7. OXALIPLATIN. [Concomitant]
     Active Substance: OXALIPLATIN
     Indication: METASTASES TO LYMPH NODES
  8. GEMCITABINE FOR INJECTION (1 GRAM LYOPHILIZED POWDER IN A STERILE SING [Suspect]
     Active Substance: GEMCITABINE HYDROCHLORIDE
     Indication: METASTASES TO LYMPH NODES
  9. GRANULOCYTE MACROPHAGE COLONY STIM FACTOR [Concomitant]
     Active Substance: GRANULOCYTE-MACROPHAGE COLONY-STIMULATING FACTOR
     Dosage: UP TO 5 DAYS EACH WEEK
     Dates: start: 201207

REACTIONS (2)
  - Thrombocytopenia [Unknown]
  - Osteonecrosis of jaw [Unknown]

NARRATIVE: CASE EVENT DATE: 201309
